FAERS Safety Report 18418596 (Version 2)
Quarter: 2020Q4

REPORT INFORMATION
  Report Type: Other
  Country: SK (occurrence: SK)
  Receive Date: 20201023
  Receipt Date: 20201110
  Transmission Date: 20210114
  Serious: Yes (Death)
  Sender: FDA-Public Use
  Company Number: SK-ROCHE-2701024

PATIENT

DRUGS (1)
  1. ACTILYSE [Suspect]
     Active Substance: ALTEPLASE
     Indication: ISCHAEMIC STROKE
     Dosage: 1 EVERY 1 TOTAL
     Route: 042
     Dates: start: 2019, end: 2019

REACTIONS (1)
  - Death [Fatal]

NARRATIVE: CASE EVENT DATE: 2019
